FAERS Safety Report 18221147 (Version 1)
Quarter: 2020Q3

REPORT INFORMATION
  Report Type: Spontaneous
  Country: US (occurrence: US)
  Receive Date: 20200901
  Receipt Date: 20200901
  Transmission Date: 20201103
  Serious: Yes (Hospitalization)
  Sender: FDA-Public Use
  Company Number: None

PATIENT
  Sex: Female

DRUGS (11)
  1. TACROLIMUS 1MG CAP [Suspect]
     Active Substance: TACROLIMUS
     Indication: RENAL TRANSPLANT
     Dosage: ?          OTHER DOSE:3CAPS?2CAPS;OTHER FREQUENCY:QAM?QPM;?
     Route: 048
     Dates: start: 20130201
  2. CEPHALEXIN. [Concomitant]
     Active Substance: CEPHALEXIN
  3. MUPIROCIN. [Concomitant]
     Active Substance: MUPIROCIN
  4. PREDNISONE. [Concomitant]
     Active Substance: PREDNISONE
  5. DOXYCYCL HYC [Concomitant]
  6. AMOX?POT CLAV [Concomitant]
  7. ONDANSETRON [Concomitant]
     Active Substance: ONDANSETRON
  8. OSELTAMIVIR [Concomitant]
     Active Substance: OSELTAMIVIR
  9. ACETAMINOPHE [Concomitant]
  10. AZATHIOPRINE. [Concomitant]
     Active Substance: AZATHIOPRINE
  11. CLOTRIM/BETA [Concomitant]

REACTIONS (2)
  - Head injury [None]
  - Road traffic accident [None]
